FAERS Safety Report 7269263-1 (Version None)
Quarter: 2011Q1

REPORT INFORMATION
  Report Type: 
  Country: None (occurrence: None)
  Receive Date: 20110202
  Receipt Date: 20110124
  Transmission Date: 20110831
  Serious: Yes (Hospitalization)
  Sender: FDA-Public Use
  Company Number: GB-JNJFOC-20110106916

PATIENT
  Sex: Male

DRUGS (3)
  1. PAROXETINE HCL [Suspect]
     Indication: OBSESSIVE-COMPULSIVE DISORDER
     Route: 065
  2. DESMOPRESSIN ACETATE [Suspect]
     Indication: ILL-DEFINED DISORDER
     Route: 065
  3. RISPERIDONE [Suspect]
     Indication: OBSESSIVE-COMPULSIVE DISORDER
     Route: 065

REACTIONS (7)
  - VOMITING [None]
  - PETECHIAE [None]
  - EPILEPSY [None]
  - PSYCHOTIC DISORDER [None]
  - OFF LABEL USE [None]
  - PYREXIA [None]
  - PAIN [None]
